FAERS Safety Report 10343013 (Version 1)
Quarter: 2014Q3

REPORT INFORMATION
  Report Type: Spontaneous
  Country: CA (occurrence: None)
  Receive Date: 20140723
  Receipt Date: 20140723
  Transmission Date: 20150326
  Serious: Yes (Other)
  Sender: FDA-Public Use
  Company Number: 2014AP003617

PATIENT
  Age: 53 Year
  Sex: Female

DRUGS (9)
  1. SITAGLIPTIN (SITAGLIPTIN) [Concomitant]
     Active Substance: SITAGLIPTIN
  2. ATORVASTATIN (ATORVASTATIN) [Concomitant]
     Active Substance: ATORVASTATIN
  3. PERINDOPRIL (PERINDOPRIL) [Concomitant]
     Active Substance: PERINDOPRIL
  4. ASPIRIN (ACETYLSALICYLIC ACID) [Concomitant]
     Active Substance: ASPIRIN
  5. BUPROPION (BUPROPION) [Concomitant]
     Active Substance: BUPROPION
  6. CITALOPRAM (CITALOPRAM) [Concomitant]
     Active Substance: CITALOPRAM HYDROBROMIDE
  7. METFORMIN [Concomitant]
     Active Substance: METFORMIN HYDROCHLORIDE
  8. APO-LITHIUM CARBONATE (LITHIUM CARBONATE) [Suspect]
     Active Substance: LITHIUM CARBONATE
  9. ZIPRASIDONE [Concomitant]
     Active Substance: ZIPRASIDONE

REACTIONS (7)
  - Toxicity to various agents [None]
  - Renal failure acute [None]
  - Nausea [None]
  - Vomiting [None]
  - Blood pressure decreased [None]
  - Diarrhoea [None]
  - Antipsychotic drug level increased [None]
